FAERS Safety Report 15593005 (Version 1)
Quarter: 2018Q4

REPORT INFORMATION
  Report Type: Spontaneous
  Country: FR (occurrence: FR)
  Receive Date: 20181106
  Receipt Date: 20181106
  Transmission Date: 20190205
  Serious: Yes (Hospitalization)
  Sender: FDA-Public Use
  Company Number: FR-SHIRE-FR201842621

PATIENT

DRUGS (10)
  1. 476 (MESALAZINE/MESALAMINE) [Suspect]
     Active Substance: MESALAMINE
     Indication: COLITIS ULCERATIVE
     Dosage: 2 G, 1X/DAY:QD
     Route: 048
     Dates: start: 2001
  2. URSODEOXYCHOLIC ACID [Suspect]
     Active Substance: URSODIOL
     Indication: CHOLANGITIS SCLEROSING
  3. INFLIXIMAB [Suspect]
     Active Substance: INFLIXIMAB
     Indication: CHOLANGITIS SCLEROSING
  4. AZATHIOPRINE. [Suspect]
     Active Substance: AZATHIOPRINE
     Indication: COLITIS ULCERATIVE
  5. 476 (MESALAZINE/MESALAMINE) [Suspect]
     Active Substance: MESALAMINE
     Indication: CHOLANGITIS SCLEROSING
  6. INFLIXIMAB [Suspect]
     Active Substance: INFLIXIMAB
     Indication: COLITIS ULCERATIVE
     Dosage: 5 MG/KG, EVERY 8 WK
     Route: 065
     Dates: start: 2013
  7. ADALIMUMAB [Suspect]
     Active Substance: ADALIMUMAB
     Indication: CHOLANGITIS SCLEROSING
     Dosage: 40 MG, UNK (EVERY OTHER WEEK FOLLOWING AN INDUCTION REGIMEN)
     Route: 065
     Dates: start: 2013
  8. ADALIMUMAB [Suspect]
     Active Substance: ADALIMUMAB
     Indication: COLITIS ULCERATIVE
  9. AZATHIOPRINE. [Suspect]
     Active Substance: AZATHIOPRINE
     Indication: CHOLANGITIS SCLEROSING
     Dosage: 100 MG, 1X/DAY:QD
     Route: 065
     Dates: start: 2011
  10. URSODEOXYCHOLIC ACID [Suspect]
     Active Substance: URSODIOL
     Indication: COLITIS ULCERATIVE
     Dosage: 1200 MG, 1X/DAY:QD
     Route: 065
     Dates: start: 2001

REACTIONS (1)
  - Drug ineffective [Recovered/Resolved]
